FAERS Safety Report 7355796-6 (Version None)
Quarter: 2011Q1

REPORT INFORMATION
  Report Type: 
  Country: None (occurrence: None)
  Receive Date: 20110316
  Receipt Date: 20110307
  Transmission Date: 20110831
  Serious: Yes (Hospitalization)
  Sender: FDA-Public Use
  Company Number: US-US-EMD SERONO, INC.-7046755

PATIENT
  Sex: Female

DRUGS (1)
  1. REBIF [Suspect]
     Indication: MULTIPLE SCLEROSIS
     Route: 058
     Dates: start: 20100329

REACTIONS (6)
  - DROOLING [None]
  - AMENORRHOEA [None]
  - INJECTION SITE ERYTHEMA [None]
  - ANAPHYLACTIC REACTION [None]
  - THYROID FUNCTION TEST ABNORMAL [None]
  - INJECTION SITE DISCOLOURATION [None]
